FAERS Safety Report 22661849 (Version 3)
Quarter: 2024Q3

REPORT INFORMATION
  Report Type: Report from Study
  Country: CO (occurrence: CO)
  Receive Date: 20230630
  Receipt Date: 20240801
  Transmission Date: 20241016
  Serious: Yes (Other)
  Sender: TAKEDA
  Company Number: CO-TAKEDA-2023TUS063992

PATIENT
  Age: 27 Year
  Sex: Male

DRUGS (6)
  1. ADVATE [Suspect]
     Active Substance: ANTIHEMOPHILIC FACTOR, HUMAN RECOMBINANT
     Indication: Acquired factor VIII deficiency
     Dosage: 2500 INTERNATIONAL UNIT, Q12H
     Route: 042
     Dates: start: 20030601
  2. ADVATE [Suspect]
     Active Substance: ANTIHEMOPHILIC FACTOR, HUMAN RECOMBINANT
     Indication: Acquired factor VIII deficiency
     Dosage: 2500 INTERNATIONAL UNIT, Q12H
     Route: 042
     Dates: start: 20030601
  3. ADVATE [Suspect]
     Active Substance: ANTIHEMOPHILIC FACTOR, HUMAN RECOMBINANT
     Indication: Acquired factor VIII deficiency
     Dosage: 2500 INTERNATIONAL UNIT, Q12H
     Route: 042
     Dates: start: 20030601
  4. ADVATE [Suspect]
     Active Substance: ANTIHEMOPHILIC FACTOR, HUMAN RECOMBINANT
     Dosage: 500 MILLIGRAM
     Route: 030
     Dates: start: 20220614
  5. ADVATE [Suspect]
     Active Substance: ANTIHEMOPHILIC FACTOR, HUMAN RECOMBINANT
     Dosage: 500 MILLIGRAM
     Route: 030
     Dates: start: 20220614
  6. ADVATE [Suspect]
     Active Substance: ANTIHEMOPHILIC FACTOR, HUMAN RECOMBINANT
     Dosage: 500 MILLIGRAM
     Route: 030
     Dates: start: 20220614

REACTIONS (6)
  - Haemarthrosis [Recovered/Resolved]
  - Incorrect route of product administration [Unknown]
  - Nail injury [Recovering/Resolving]
  - Swelling [Recovering/Resolving]
  - Pain [Recovering/Resolving]
  - Limb injury [Recovering/Resolving]

NARRATIVE: CASE EVENT DATE: 20230610
